FAERS Safety Report 8848233 (Version 1)
Quarter: 2012Q4

REPORT INFORMATION
  Report Type: 
  Country: US (occurrence: US)
  Receive Date: 20121018
  Receipt Date: 20121018
  Transmission Date: 20130627
  Serious: No
  Sender: FDA-Public Use
  Company Number: US-VERTEX PHARMACEUTICAL INC.-2012-022190

PATIENT
  Sex: Male
  Weight: 65 kg

DRUGS (7)
  1. INCIVEK [Suspect]
     Indication: HEPATITIS C
     Dosage: 750 mg, tid
     Route: 048
     Dates: start: 20120731, end: 20120827
  2. RIBAVIRIN [Suspect]
     Indication: HEPATITIS C
     Dosage: 600 mg in am, 400 mg in pm
     Dates: start: 20120630
  3. RIBAVIRIN [Suspect]
     Dosage: 400 mg, bid
  4. RIBAVIRIN [Suspect]
     Dosage: dose increased
     Dates: end: 20120827
  5. PEGASYS [Suspect]
     Indication: HEPATITIS C
     Dosage: 180 ?g, UNK
     Route: 058
     Dates: start: 20120630
  6. PEGASYS [Suspect]
     Dosage: 90 ?g, UNK
  7. PEGASYS [Suspect]
     Dosage: dose increased
     Dates: end: 20120827

REACTIONS (1)
  - Drug ineffective [Not Recovered/Not Resolved]
